FAERS Safety Report 7296682-X (Version None)
Quarter: 2011Q1

REPORT INFORMATION
  Report Type: 
  Country: None (occurrence: None)
  Receive Date: 20110201
  Receipt Date: 20110118
  Transmission Date: 20110831
  Serious: Yes (Hospitalization, Other)
  Sender: FDA-Public Use
  Company Number: 2010PROUSA00124

PATIENT
  Age: 92 Year
  Sex: Male
  Weight: 71.9 kg

DRUGS (12)
  1. CALCIUM [Concomitant]
  2. PROVENGE [Suspect]
     Indication: PROSTATE CANCER METASTATIC
     Dosage: 250 ML, SINGLE; INTRAVENOUS;
     Route: 042
     Dates: start: 20100716, end: 20100716
  3. ZOLEDRONIC ACID [Concomitant]
  4. DIGOXIN [Concomitant]
  5. DOCETAXEL [Concomitant]
  6. PROVENGE [Suspect]
     Indication: PROSTATE CANCER METASTATIC
     Dosage: 250 ML, SINGLE; INTRAVENOUS
     Route: 042
     Dates: start: 20100819, end: 20100819
  7. CHOLECALCIFEROL [Concomitant]
  8. BETA BLOCKING AGENTS [Concomitant]
  9. ASPIRIN [Concomitant]
  10. PRILOSEC (OMEPRAZOLE) [Concomitant]
  11. PROVENGE [Suspect]
     Indication: PROSTATE CANCER METASTATIC
     Dosage: 250 ML, SINGLEL INTRAVENOUS
     Route: 042
     Dates: start: 20100805, end: 20100805
  12. ZOLADEX [Concomitant]

REACTIONS (26)
  - TRICUSPID VALVE INCOMPETENCE [None]
  - TENDERNESS [None]
  - BONE PAIN [None]
  - ATRIAL FIBRILLATION [None]
  - DIARRHOEA [None]
  - DECREASED APPETITE [None]
  - TACHYCARDIA [None]
  - ISCHAEMIC STROKE [None]
  - SICK SINUS SYNDROME [None]
  - ALOPECIA [None]
  - PAIN [None]
  - ASTHENIA [None]
  - INSOMNIA [None]
  - COUGH [None]
  - BRADYCARDIA [None]
  - PROSTATIC SPECIFIC ANTIGEN INCREASED [None]
  - MENTAL IMPAIRMENT [None]
  - FATIGUE [None]
  - AORTIC STENOSIS [None]
  - RASH MACULAR [None]
  - ANAEMIA [None]
  - CONFUSIONAL STATE [None]
  - DEPRESSION [None]
  - RASH ERYTHEMATOUS [None]
  - WEIGHT DECREASED [None]
  - NAUSEA [None]
